FAERS Safety Report 7147894-7 (Version None)
Quarter: 2010Q4

REPORT INFORMATION
  Report Type: 
  Country: None (occurrence: None)
  Receive Date: 20101209
  Receipt Date: 20101130
  Transmission Date: 20110411
  Serious: Yes (Other)
  Sender: FDA-Public Use
  Company Number: JP-JNJFOC-20101107120

PATIENT
  Age: 28 Year
  Sex: Female

DRUGS (4)
  1. RISPERDAL [Suspect]
     Indication: RESTLESSNESS
     Route: 048
  2. RISPERDAL [Suspect]
     Route: 048
  3. RISPERDAL [Suspect]
     Route: 048
  4. RISPERDAL [Suspect]
     Route: 048

REACTIONS (2)
  - GAZE PALSY [None]
  - OFF LABEL USE [None]
